FAERS Safety Report 6768869-3 (Version None)
Quarter: 2010Q2

REPORT INFORMATION
  Report Type: 
  Country: None (occurrence: None)
  Receive Date: 20100611
  Receipt Date: 20100601
  Transmission Date: 20101027
  Serious: Yes (Hospitalization)
  Sender: FDA-Public Use
  Company Number: DSA_43224_2010

PATIENT
  Age: 74 Year
  Sex: Male

DRUGS (3)
  1. ENALAPRIL MALEATE [Suspect]
     Indication: HYPERTENSION
     Dosage: 40 MG 1X ORAL, 20 MG 1X ORAL, 5 MG QD ORAL
     Route: 048
     Dates: start: 20091116, end: 20091116
  2. ENALAPRIL MALEATE [Suspect]
     Indication: HYPERTENSION
     Dosage: 40 MG 1X ORAL, 20 MG 1X ORAL, 5 MG QD ORAL
     Route: 048
     Dates: start: 20091117, end: 20091117
  3. ENALAPRIL MALEATE [Suspect]
     Indication: HYPERTENSION
     Dosage: 40 MG 1X ORAL, 20 MG 1X ORAL, 5 MG QD ORAL
     Route: 048
     Dates: start: 20091118, end: 20091124

REACTIONS (3)
  - HYPERKALAEMIA [None]
  - METABOLIC ACIDOSIS [None]
  - RENAL IMPAIRMENT [None]
